FAERS Safety Report 21432535 (Version 2)
Quarter: 2023Q2

REPORT INFORMATION
  Report Type: Spontaneous
  Country: US (occurrence: None)
  Receive Date: 20221010
  Receipt Date: 20230522
  Transmission Date: 20230721
  Serious: Yes (Hospitalization, Disabling, Other)
  Sender: FDA-Public Use
  Company Number: US-ROCHE-3194303

PATIENT

DRUGS (1)
  1. OCREVUS [Suspect]
     Active Substance: OCRELIZUMAB
     Indication: Product used for unknown indication
     Route: 065

REACTIONS (6)
  - Gastrointestinal haemorrhage [Unknown]
  - Gastric infection [Unknown]
  - Gastrointestinal infection [Unknown]
  - Colitis [Unknown]
  - Illness [Unknown]
  - Feeling abnormal [Unknown]
